FAERS Safety Report 6124351-8 (Version None)
Quarter: 2009Q1

REPORT INFORMATION
  Report Type: 
  Country: None (occurrence: None)
  Receive Date: 20090317
  Receipt Date: 20090304
  Transmission Date: 20090719
  Serious: Yes (Death, Hospitalization, Other)
  Sender: FDA-Public Use
  Company Number: 2009US000651

PATIENT
  Age: 61 Year
  Sex: Male

DRUGS (2)
  1. PROGRAF [Suspect]
     Indication: LUNG TRANSPLANT
  2. PREDNISONE TAB [Concomitant]

REACTIONS (17)
  - APNOEIC ATTACK [None]
  - ATRIAL FIBRILLATION [None]
  - BRONCHIAL FISTULA [None]
  - BRONCHOPULMONARY ASPERGILLOSIS [None]
  - CANDIDIASIS [None]
  - CHORIORETINITIS [None]
  - CLOSTRIDIUM DIFFICILE COLITIS [None]
  - ELECTROMECHANICAL DISSOCIATION [None]
  - EMPYEMA [None]
  - LUNG INFECTION PSEUDOMONAL [None]
  - MEGACOLON [None]
  - PULMONARY ALVEOLAR HAEMORRHAGE [None]
  - PULMONARY HAEMORRHAGE [None]
  - RESPIRATORY FAILURE [None]
  - SEPSIS [None]
  - STREPTOCOCCAL INFECTION [None]
  - WOUND INFECTION [None]
